FAERS Safety Report 9825814 (Version 1)
Quarter: 2014Q1

REPORT INFORMATION
  Report Type: Spontaneous
  Country: US (occurrence: None)
  Receive Date: 20140116
  Receipt Date: 20140116
  Transmission Date: 20141002
  Serious: Yes (Other)
  Sender: FDA-Public Use
  Company Number: None

PATIENT
  Age: 6 Year
  Sex: Male
  Weight: 21.59 kg

DRUGS (1)
  1. LEVALBUTEROL HCL [Suspect]
     Indication: ASTHMA
     Dosage: 0.63 IN A Q46 NEBULIZER
     Dates: start: 201301

REACTIONS (3)
  - Tachycardia [None]
  - Tremor [None]
  - Nervousness [None]
